FAERS Safety Report 24736634 (Version 1)
Quarter: 2024Q4

REPORT INFORMATION
  Report Type: Spontaneous
  Country: GB (occurrence: GB)
  Receive Date: 20241216
  Receipt Date: 20241216
  Transmission Date: 20250115
  Serious: No
  Sender: MARKSANS PHARMA LIMITED
  Company Number: GB-MARKSANS PHARMA LIMITED-MPL202400088

PATIENT

DRUGS (1)
  1. FLUOXETINE [Suspect]
     Active Substance: FLUOXETINE HYDROCHLORIDE
     Indication: Product used for unknown indication
     Dosage: UNK
     Route: 048

REACTIONS (5)
  - Abdominal distension [Unknown]
  - Abdominal discomfort [Unknown]
  - Brain fog [Unknown]
  - Nausea [Unknown]
  - Headache [Unknown]
